FAERS Safety Report 4439565-2 (Version None)
Quarter: 2004Q3

REPORT INFORMATION
  Report Type: 
  Country: None (occurrence: None)
  Receive Date: 20040902
  Receipt Date: 20040825
  Transmission Date: 20050211
  Serious: Yes (Hospitalization)
  Sender: FDA-Public Use
  Company Number: US-JNJFOC-20040707740

PATIENT
  Sex: Female
  Weight: 81.65 kg

DRUGS (6)
  1. REMICADE [Suspect]
     Indication: RHEUMATOID ARTHRITIS
     Dosage: TOTAL OF FOUR INFUSIONS
     Route: 042
  2. METHOTREXATE [Concomitant]
  3. SYNTHROID [Concomitant]
  4. PREDNISONE [Concomitant]
  5. FOLIC ACID [Concomitant]
  6. ASPIRIN [Concomitant]

REACTIONS (11)
  - BACK PAIN [None]
  - CHILLS [None]
  - COUGH [None]
  - FEELING HOT AND COLD [None]
  - HYPOAESTHESIA [None]
  - PHARYNGITIS [None]
  - PRURITUS [None]
  - PYREXIA [None]
  - RASH [None]
  - VASODILATATION [None]
  - VISUAL ACUITY REDUCED [None]
